FAERS Safety Report 12872804 (Version 4)
Quarter: 2017Q1

REPORT INFORMATION
  Report Type: Report from Study
  Country: US (occurrence: US)
  Receive Date: 20161021
  Receipt Date: 20170123
  Transmission Date: 20170428
  Serious: Yes (Hospitalization)
  Sender: FDA-Public Use
  Company Number: US-PFIZER INC-2016465673

PATIENT
  Age: 56 Year
  Sex: Female
  Weight: 77.98 kg

DRUGS (29)
  1. NUCYNTA [Concomitant]
     Active Substance: TAPENTADOL HYDROCHLORIDE
     Indication: OPEN REDUCTION OF FRACTURE
     Dosage: 50 MG, 1X
     Route: 048
     Dates: start: 20160930, end: 20160930
  2. LIDOCAINE. [Concomitant]
     Active Substance: LIDOCAINE
     Indication: OPEN REDUCTION OF FRACTURE
     Dosage: 80 MG, 1X
     Route: 042
     Dates: start: 20160930, end: 20160930
  3. PROPOFOL. [Concomitant]
     Active Substance: PROPOFOL
     Indication: OPEN REDUCTION OF FRACTURE
     Dosage: 150 MG, 1X
     Route: 042
     Dates: start: 20160930, end: 20160930
  4. EPHEDRINE. [Concomitant]
     Active Substance: EPHEDRINE
     Indication: OPEN REDUCTION OF FRACTURE
     Dosage: 15 MG, 1X
     Route: 042
     Dates: start: 20160930, end: 20160930
  5. MORPHINE SULFATE. [Suspect]
     Active Substance: MORPHINE SULFATE
     Indication: OPEN REDUCTION OF FRACTURE
     Dosage: 2 MG, 1X
     Route: 042
     Dates: start: 20160930, end: 20160930
  6. FOSAMAX [Concomitant]
     Active Substance: ALENDRONATE SODIUM
     Indication: OSTEOPOROSIS
     Dosage: 70 MG, QW
     Route: 048
     Dates: start: 20150420
  7. SCOPOLAMINE /00008701/ [Concomitant]
     Active Substance: SCOPOLAMINE
     Indication: OPEN REDUCTION OF FRACTURE
     Dosage: 1 PATCH 1.5 MG/3DAYS, 1X
     Route: 062
     Dates: start: 20160930, end: 20160930
  8. CEFAZOLIN [Concomitant]
     Active Substance: CEFAZOLIN
     Indication: OPEN REDUCTION OF FRACTURE
     Dosage: 2 G, 1X
     Route: 042
     Dates: start: 20160930, end: 20160930
  9. LACTATED RINGERS [Concomitant]
     Active Substance: CALCIUM CHLORIDE\POTASSIUM CHLORIDE\SODIUM CHLORIDE\SODIUM LACTATE
     Indication: OPEN REDUCTION OF FRACTURE
     Dosage: 1200 ML, 1X
     Route: 042
     Dates: start: 20160930, end: 20160930
  10. FENTANYL CITRATE. [Suspect]
     Active Substance: FENTANYL CITRATE
     Indication: OPEN REDUCTION OF FRACTURE
     Dosage: 150 MCG, 1X (SINGLE)
     Route: 042
     Dates: start: 20160930, end: 20160930
  11. HALDOL [Concomitant]
     Active Substance: HALOPERIDOL
     Indication: OPEN REDUCTION OF FRACTURE
     Dosage: 1 MG, 1X
     Route: 042
     Dates: start: 20160930, end: 20160930
  12. LORTAB [Suspect]
     Active Substance: ACETAMINOPHEN\HYDROCODONE BITARTRATE
     Indication: OPEN REDUCTION OF FRACTURE
     Dosage: [HYDROCODONE BITARTRATE 5 MG]/[PARACETAMOL 325 MG], PRN
     Route: 048
     Dates: start: 20160930, end: 20161001
  13. DEMEROL [Suspect]
     Active Substance: MEPERIDINE HYDROCHLORIDE
     Indication: OPEN REDUCTION OF FRACTURE
     Dosage: 2 MG, PRN
     Route: 042
     Dates: start: 20160930, end: 20160930
  14. TYLENOL [Concomitant]
     Active Substance: ACETAMINOPHEN
     Indication: OPEN REDUCTION OF FRACTURE
     Dosage: 650 MG, 1X
     Route: 048
     Dates: start: 20160930, end: 20160930
  15. XELJANZ [Suspect]
     Active Substance: TOFACITINIB CITRATE
     Indication: PSORIATIC ARTHROPATHY
     Dosage: 10 MG, BID
     Route: 048
     Dates: start: 201411, end: 20160927
  16. DILAUDID [Suspect]
     Active Substance: HYDROMORPHONE HYDROCHLORIDE
     Indication: OPEN REDUCTION OF FRACTURE
     Dosage: 0.2 MG, PRN
     Route: 042
     Dates: start: 20160930, end: 20160930
  17. FOLIC ACID. [Concomitant]
     Active Substance: FOLIC ACID
     Indication: NUTRITIONAL SUPPLEMENTATION
     Dosage: 1 MG, QD
     Route: 048
     Dates: start: 20131003
  18. ZOFRAN [Concomitant]
     Active Substance: ONDANSETRON HYDROCHLORIDE
     Indication: NAUSEA
     Dosage: 4 MG, PRN
     Route: 048
     Dates: start: 20160929
  19. CELEBREX [Concomitant]
     Active Substance: CELECOXIB
     Indication: OPEN REDUCTION OF FRACTURE
     Dosage: 200 MG, 1X
     Route: 048
     Dates: start: 20160930, end: 20160930
  20. CALCIUM CARBONATE AND VITAMIN D [Concomitant]
     Active Substance: CALCIUM CARBONATE\VITAMIN D
     Indication: NUTRITIONAL SUPPLEMENTATION
     Dosage: [CALCIUM CARBONATE 600 MG]/ [COLECALCIFEROL 400 MG], 1X/DAY
     Route: 048
     Dates: start: 2013
  21. REMIFENTANIL [Concomitant]
     Active Substance: REMIFENTANIL
     Indication: OPEN REDUCTION OF FRACTURE
     Dosage: 400 MCG, 1X
     Route: 042
     Dates: start: 20160930, end: 20160930
  22. LYRICA [Concomitant]
     Active Substance: PREGABALIN
     Indication: OPEN REDUCTION OF FRACTURE
     Dosage: 75 MG, 1X
     Route: 048
     Dates: start: 20160930, end: 20160930
  23. SUFENTA [Concomitant]
     Active Substance: SUFENTANIL CITRATE
     Indication: OPEN REDUCTION OF FRACTURE
     Dosage: 45 MCG, 1X
     Dates: start: 20160930, end: 20160930
  24. DEXAMETHAZONE [Concomitant]
     Active Substance: DEXAMETHASONE
     Indication: OPEN REDUCTION OF FRACTURE
     Dosage: 4 MG, 1X
     Route: 042
     Dates: start: 20160930, end: 20160930
  25. ONDANSETRON [Concomitant]
     Active Substance: ONDANSETRON
     Indication: OPEN REDUCTION OF FRACTURE
     Dosage: 4 MG, 1X
     Route: 042
     Dates: start: 20160930, end: 20160930
  26. PERCOCET [Suspect]
     Active Substance: ACETAMINOPHEN\OXYCODONE HYDROCHLORIDE
     Indication: ANKLE FRACTURE
     Dosage: 1 TAB [OXYCODONE 10 MG]/ [ACETOMINOPHEN 325MG], PRN
     Route: 048
     Dates: start: 20160929
  27. VERSED [Suspect]
     Active Substance: MIDAZOLAM HYDROCHLORIDE
     Indication: OPEN REDUCTION OF FRACTURE
     Dosage: 2 MG, 1X
     Route: 042
     Dates: start: 20160930, end: 20160930
  28. METHOTREXATE. [Concomitant]
     Active Substance: METHOTREXATE
     Indication: PSORIATIC ARTHROPATHY
     Dosage: 20 MG, QW
     Route: 048
     Dates: start: 20131003
  29. SYNTHROID [Concomitant]
     Active Substance: LEVOTHYROXINE SODIUM
     Indication: HYPOTHYROIDISM
     Dosage: 175 MCG, QD
     Route: 048
     Dates: start: 198309

REACTIONS (1)
  - Apnoea [Recovered/Resolved]

NARRATIVE: CASE EVENT DATE: 20160930
